FAERS Safety Report 18111513 (Version 18)
Quarter: 2024Q3

REPORT INFORMATION
  Report Type: Report from Study
  Country: CA (occurrence: CA)
  Receive Date: 20200804
  Receipt Date: 20240925
  Transmission Date: 20241017
  Serious: Yes (Life-Threatening, Other)
  Sender: NOVARTIS
  Company Number: PHHY2017CA175098

PATIENT
  Age: 6 Year
  Sex: Male

DRUGS (18)
  1. ILARIS [Suspect]
     Active Substance: CANAKINUMAB
     Indication: Muckle-Wells syndrome
     Dosage: 135 MG, EVERY 8 WEEKS
     Route: 058
     Dates: start: 20170313
  2. ILARIS [Suspect]
     Active Substance: CANAKINUMAB
     Dosage: 80 MG, EVERY 8 WEEKS
     Route: 058
     Dates: start: 201801
  3. ILARIS [Suspect]
     Active Substance: CANAKINUMAB
     Dosage: 80 DOSAGE FORM, EVERY 8 WEEKS
     Route: 058
     Dates: start: 201808
  4. ILARIS [Suspect]
     Active Substance: CANAKINUMAB
     Dosage: 80 DOSAGE FORM, EVERY 8 WEEKS
     Route: 058
     Dates: start: 20181008
  5. ILARIS [Suspect]
     Active Substance: CANAKINUMAB
     Dosage: 79 MG, EVERY 6 WEEKS
     Route: 058
  6. ILARIS [Suspect]
     Active Substance: CANAKINUMAB
     Dosage: 79 MG, EVERY 8 WEEKS
     Route: 058
     Dates: start: 20190407
  7. ILARIS [Suspect]
     Active Substance: CANAKINUMAB
     Dosage: 100 MG, EVERY 6 WEEKS
     Route: 058
     Dates: start: 20190519
  8. ILARIS [Suspect]
     Active Substance: CANAKINUMAB
     Dosage: 100 MG, EVERY 8 WEEKS
     Route: 058
  9. ILARIS [Suspect]
     Active Substance: CANAKINUMAB
     Dosage: UNK
     Route: 058
     Dates: start: 20201004
  10. ILARIS [Suspect]
     Active Substance: CANAKINUMAB
     Dosage: 135 MG, EVERY 6 WEEKS
     Route: 058
  11. ILARIS [Suspect]
     Active Substance: CANAKINUMAB
     Dosage: 150 MG, EVERY 6 WEEKS
     Route: 058
  12. ILARIS [Suspect]
     Active Substance: CANAKINUMAB
     Dosage: 150 MG, EVERY 6 WEEKS
     Route: 058
     Dates: start: 20230305
  13. ILARIS [Suspect]
     Active Substance: CANAKINUMAB
     Dosage: 0.95 ML
     Route: 065
  14. ILARIS [Suspect]
     Active Substance: CANAKINUMAB
     Dosage: 150 MG, EVERY 5 WEEKS
     Route: 058
  15. COLCHICINE [Concomitant]
     Active Substance: COLCHICINE
     Indication: Product used for unknown indication
     Dosage: 1 DOSAGE FORM, BID
     Route: 065
     Dates: start: 20180814, end: 2020
  16. COLCHICINE [Concomitant]
     Active Substance: COLCHICINE
     Dosage: 2 DOSAGE FORM, QD
     Route: 065
  17. COLCHICINE [Concomitant]
     Active Substance: COLCHICINE
     Dosage: 1 DOSAGE FORM, BID
     Route: 065
  18. COLCHICINE [Concomitant]
     Active Substance: COLCHICINE
     Dosage: OTHER, (0.6 MG IN MORNING AND 0.9 MG AT NIGHT) DOSE CHANGED ABOUT 2 YEARS AGO
     Route: 048
     Dates: start: 2020

REACTIONS (35)
  - Serum amyloid A protein increased [Unknown]
  - Autism spectrum disorder [Unknown]
  - Obsessive-compulsive disorder [Unknown]
  - Stiff leg syndrome [Unknown]
  - Stress [Unknown]
  - Fear of injection [Unknown]
  - Salivary gland mass [Unknown]
  - Pain in extremity [Unknown]
  - Anxiety [Unknown]
  - Discomfort [Unknown]
  - Attention deficit hyperactivity disorder [Unknown]
  - Hypoacusis [Unknown]
  - Pain [Unknown]
  - Arthritis [Unknown]
  - Arthralgia [Unknown]
  - Lactose intolerance [Unknown]
  - Myalgia [Unknown]
  - Limb discomfort [Unknown]
  - Condition aggravated [Unknown]
  - Tonsillitis [Unknown]
  - Nasopharyngitis [Recovering/Resolving]
  - COVID-19 [Unknown]
  - Rhinorrhoea [Unknown]
  - Cough [Recovering/Resolving]
  - Fatigue [Unknown]
  - Influenza [Recovered/Resolved]
  - Oropharyngeal pain [Recovering/Resolving]
  - Illness [Recovering/Resolving]
  - Pyrexia [Recovering/Resolving]
  - Muckle-Wells syndrome [Unknown]
  - Infection [Unknown]
  - Vomiting [Unknown]
  - Incorrect dose administered [Unknown]
  - Drug ineffective [Unknown]
  - Off label use [Unknown]

NARRATIVE: CASE EVENT DATE: 20170713
